FAERS Safety Report 7074477-X (Version None)
Quarter: 2010Q4

REPORT INFORMATION
  Report Type: 
  Country: None (occurrence: None)
  Receive Date: 20101021
  Receipt Date: 20101011
  Transmission Date: 20110411
  Serious: Yes (Hospitalization)
  Sender: FDA-Public Use
  Company Number: 1000016738

PATIENT
  Sex: Male

DRUGS (1)
  1. LEXAPRO [Suspect]

REACTIONS (3)
  - CHEST PAIN [None]
  - HYPERHIDROSIS [None]
  - PAIN IN EXTREMITY [None]
